FAERS Safety Report 7608578-1 (Version None)
Quarter: 2011Q3

REPORT INFORMATION
  Report Type: 
  Country: None (occurrence: None)
  Receive Date: 20110714
  Receipt Date: 20110706
  Transmission Date: 20111222
  Serious: Yes (Other)
  Sender: FDA-Public Use
  Company Number: JP-JNJFOC-20110704880

PATIENT
  Age: 27 Year
  Sex: Male

DRUGS (2)
  1. POLARAMINE [Suspect]
     Indication: PRODUCT USED FOR UNKNOWN INDICATION
     Route: 065
  2. LEVOFLOXACIN [Suspect]
     Indication: INFECTION
     Route: 048
     Dates: start: 20110630, end: 20110630

REACTIONS (5)
  - CONVULSION [None]
  - RESPIRATORY DISORDER [None]
  - PAIN [None]
  - ERYTHEMA [None]
  - LOSS OF CONSCIOUSNESS [None]
